FAERS Safety Report 12905894 (Version 2)
Quarter: 2016Q4

REPORT INFORMATION
  Report Type: Spontaneous
  Country: US (occurrence: US)
  Receive Date: 20161103
  Receipt Date: 20161114
  Transmission Date: 20170207
  Serious: Yes (Other)
  Sender: FDA-Public Use
  Company Number: US-BAYER-2016-208188

PATIENT
  Age: 69 Year
  Sex: Female
  Weight: 81.63 kg

DRUGS (6)
  1. VITAMIN D [Concomitant]
     Active Substance: CHOLECALCIFEROL
  2. BAYER GENUINE ASPIRIN [Suspect]
     Active Substance: ASPIRIN
  3. VITAMIN B12 [Concomitant]
     Active Substance: CYANOCOBALAMIN
  4. ALEVE [Suspect]
     Active Substance: NAPROXEN SODIUM
  5. RANITIDINE. [Concomitant]
     Active Substance: RANITIDINE
     Dosage: 150 MG, PRN
  6. PREVNAR [Suspect]
     Active Substance: PNEUMOCOCCAL 7-VALENT CONJUGATE VACCINE (DIPHTHERIA CRM197 PROTEIN)
     Dosage: UNK
     Dates: start: 2016, end: 2016

REACTIONS (12)
  - Insomnia [None]
  - Drug dependence [Unknown]
  - Musculoskeletal disorder [None]
  - Pain in extremity [None]
  - Off label use [Unknown]
  - Musculoskeletal stiffness [None]
  - Lethargy [None]
  - Therapeutic response unexpected [Unknown]
  - Product use issue [Unknown]
  - Product use issue [None]
  - Joint stiffness [None]
  - Arthritis [None]
